FAERS Safety Report 5370909-3 (Version None)
Quarter: 2007Q2

REPORT INFORMATION
  Report Type: 
  Country: None (occurrence: None)
  Receive Date: 20070626
  Receipt Date: 20070612
  Transmission Date: 20071010
  Serious: Yes (Hospitalization)
  Sender: FDA-Public Use
  Company Number: US-SHR-US-2007-022155

PATIENT
  Age: 47 Year
  Sex: Male

DRUGS (3)
  1. BETASERON [Suspect]
     Dosage: 8 MIU, EVERY 2D
     Route: 058
     Dates: start: 20050213
  2. CRESTOR [Concomitant]
  3. ELAVIL [Concomitant]
     Indication: HYPERSENSITIVITY

REACTIONS (3)
  - INJECTION SITE DISCOMFORT [None]
  - TENSION HEADACHE [None]
  - VENTRICULAR TACHYCARDIA [None]
